FAERS Safety Report 7661700-3 (Version None)
Quarter: 2011Q3

REPORT INFORMATION
  Report Type: 
  Country: None (occurrence: None)
  Receive Date: 20110805
  Receipt Date: 20101026
  Transmission Date: 20111222
  Serious: No
  Sender: FDA-Public Use
  Company Number: US-ABBOTT-10P-163-0681368-00

PATIENT
  Sex: Female
  Weight: 59.02 kg

DRUGS (3)
  1. LAMICTAL XL [Concomitant]
     Indication: PRODUCT USED FOR UNKNOWN INDICATION
  2. STOOL SOFTNER [Concomitant]
     Indication: PRODUCT USED FOR UNKNOWN INDICATION
  3. NIASPAN [Suspect]
     Indication: LOW DENSITY LIPOPROTEIN INCREASED
     Dosage: 2-500 MG
     Dates: start: 20100601

REACTIONS (1)
  - FLUSHING [None]
